FAERS Safety Report 22316106 (Version 1)
Quarter: 2023Q2

REPORT INFORMATION
  Report Type: Other
  Country: None (occurrence: FR)
  Receive Date: 20230512
  Receipt Date: 20230512
  Transmission Date: 20230722
  Serious: Yes (Hospitalization, Other)
  Sender: FDA-Public Use
  Company Number: EU-ALSI-2023000066

PATIENT
  Age: 15 Year
  Sex: Male

DRUGS (1)
  1. NITROUS OXIDE [Suspect]
     Active Substance: NITROUS OXIDE
     Indication: Product used for unknown indication

REACTIONS (4)
  - Ventricular tachycardia [Unknown]
  - Monoplegia [Unknown]
  - Muscular weakness [Unknown]
  - Altered state of consciousness [Unknown]
